FAERS Safety Report 9981371 (Version 1)
Quarter: 2014Q1

REPORT INFORMATION
  Report Type: Spontaneous
  Country: FR (occurrence: FR)
  Receive Date: 20140307
  Receipt Date: 20140307
  Transmission Date: 20141002
  Serious: Yes (Other)
  Sender: FDA-Public Use
  Company Number: FR-009507513-1402FRA013475

PATIENT
  Sex: Male
  Weight: 80 kg

DRUGS (2)
  1. SINEMET 100 MG / 10 MG COMPRIME SECABLE [Suspect]
     Indication: PARKINSON^S DISEASE
     Dosage: 2 DF, QD
     Route: 048
     Dates: start: 1998
  2. STALEVO [Concomitant]
     Indication: PARKINSON^S DISEASE
     Dosage: 4 DF, QD
     Route: 048

REACTIONS (1)
  - Prostate cancer [Unknown]
